FAERS Safety Report 11520786 (Version 9)
Quarter: 2017Q1

REPORT INFORMATION
  Report Type: Report from Study
  Country: NL (occurrence: NL)
  Receive Date: 20150918
  Receipt Date: 20170116
  Transmission Date: 20170428
  Serious: Yes (Hospitalization)
  Sender: FDA-Public Use
  Company Number: PHHO2015NL014251

PATIENT
  Age: 66 Year
  Sex: Male
  Weight: 82 kg

DRUGS (2)
  1. DASATINIB [Suspect]
     Active Substance: DASATINIB
     Indication: CHRONIC MYELOID LEUKAEMIA
     Dosage: 100 MG, QD
     Route: 065
     Dates: start: 20150416, end: 20150602
  2. TASIGNA [Suspect]
     Active Substance: NILOTINIB
     Indication: CHRONIC MYELOID LEUKAEMIA
     Dosage: 300 MG, BID
     Route: 048
     Dates: start: 20130815, end: 20150415

REACTIONS (11)
  - Vision blurred [Unknown]
  - Presyncope [Unknown]
  - Groin pain [Unknown]
  - Muscle spasms [Unknown]
  - Dyspepsia [Unknown]
  - Fatigue [Unknown]
  - Anaemia [Unknown]
  - Atrial flutter [Recovered/Resolved]
  - Nausea [Unknown]
  - Abdominal pain [Unknown]
  - Coronary artery stenosis [Recovered/Resolved]

NARRATIVE: CASE EVENT DATE: 20140605
